FAERS Safety Report 21443949 (Version 1)
Quarter: 2022Q4

REPORT INFORMATION
  Report Type: Spontaneous
  Country: GB (occurrence: GB)
  Receive Date: 20221012
  Receipt Date: 20221012
  Transmission Date: 20230113
  Serious: Yes (Disabling, Other)
  Sender: FDA-Public Use
  Company Number: None

PATIENT
  Age: 39 Year
  Sex: Female
  Weight: 81 kg

DRUGS (7)
  1. FLUCONAZOLE [Suspect]
     Active Substance: FLUCONAZOLE
     Dosage: UNK
     Route: 065
     Dates: start: 20220928
  2. CLOTRIMAZOLE [Suspect]
     Active Substance: CLOTRIMAZOLE
     Dosage: UNK
     Route: 065
     Dates: start: 20220928
  3. FLUCLOXACILLIN [Suspect]
     Active Substance: FLUCLOXACILLIN
     Dosage: DOSGAE TEXT: TAKE ONE 4 TIMES/DAY
     Route: 065
     Dates: start: 20220928
  4. NYSTATIN [Suspect]
     Active Substance: NYSTATIN
     Dosage: DOSGAE TEXT: USE 1 ML FOUR TIMES DAILY AFTER FOOD
     Route: 065
     Dates: start: 20220928
  5. AMITRIPTYLINE HYDROCHLORIDE [Concomitant]
     Active Substance: AMITRIPTYLINE HYDROCHLORIDE
     Dosage: DOSAGE TEXT: TAKE ONE TABLET AT NIGHT
     Route: 065
     Dates: start: 20220720, end: 20220817
  6. LANSOPRAZOLE [Concomitant]
     Active Substance: LANSOPRAZOLE
     Dosage: DOSGAE TEXT: ONE TO BE TAKEN DAILY
     Route: 065
     Dates: start: 20220818, end: 20220915
  7. NAPROXEN [Concomitant]
     Active Substance: NAPROXEN
     Indication: Pain
     Dosage: DOSGAE TEXT: ONE TO BE TAKEN TWICE DAILY WHEN REQUIRED WITH FOOD
     Route: 065
     Dates: start: 20220818, end: 20220915

REACTIONS (2)
  - Swollen tongue [Recovering/Resolving]
  - Rash [Recovering/Resolving]

NARRATIVE: CASE EVENT DATE: 20220928
